FAERS Safety Report 18557674 (Version 1)
Quarter: 2020Q4

REPORT INFORMATION
  Report Type: Spontaneous
  Country: DE (occurrence: DE)
  Receive Date: 20201130
  Receipt Date: 20201130
  Transmission Date: 20210114
  Serious: Yes (Hospitalization, Other)
  Sender: FDA-Public Use
  Company Number: DE-ABBVIE-20K-062-3667113-00

PATIENT
  Age: 47 Year
  Sex: Female

DRUGS (10)
  1. MESALAZIN [Suspect]
     Active Substance: MESALAMINE
     Indication: PRODUCT USED FOR UNKNOWN INDICATION
     Route: 065
  2. VEDOLIZUMAB [Suspect]
     Active Substance: VEDOLIZUMAB
     Indication: PRODUCT USED FOR UNKNOWN INDICATION
     Route: 042
  3. AZATHIOPRIN [Suspect]
     Active Substance: AZATHIOPRINE
     Route: 065
     Dates: end: 2020
  4. ADALIMUMAB [Suspect]
     Active Substance: ADALIMUMAB
     Indication: PRODUCT USED FOR UNKNOWN INDICATION
     Route: 058
  5. AZATHIOPRIN [Suspect]
     Active Substance: AZATHIOPRINE
     Route: 065
  6. INFLIXIMAB [Suspect]
     Active Substance: INFLIXIMAB
     Indication: PRODUCT USED FOR UNKNOWN INDICATION
     Route: 065
     Dates: start: 2012
  7. INFLIXIMAB [Suspect]
     Active Substance: INFLIXIMAB
     Route: 065
     Dates: end: 2016
  8. INFLIXIMAB [Suspect]
     Active Substance: INFLIXIMAB
     Route: 065
     Dates: start: 2020
  9. AZATHIOPRIN [Suspect]
     Active Substance: AZATHIOPRINE
     Indication: PRODUCT USED FOR UNKNOWN INDICATION
     Route: 065
     Dates: start: 1998
  10. INFLIXIMAB [Suspect]
     Active Substance: INFLIXIMAB
     Route: 065

REACTIONS (13)
  - Faecal calprotectin increased [Recovering/Resolving]
  - Cholecystitis acute [Recovering/Resolving]
  - Intestinal dilatation [Recovering/Resolving]
  - Urinary tract infection [Recovering/Resolving]
  - Large intestinal stenosis [Recovering/Resolving]
  - Abdominal pain lower [Recovering/Resolving]
  - Basal cell carcinoma [Unknown]
  - Off label use [Unknown]
  - Clostridium difficile infection [Recovering/Resolving]
  - Gastrointestinal inflammation [Recovering/Resolving]
  - Rash [Recovering/Resolving]
  - Diarrhoea [Recovering/Resolving]
  - Vomiting [Recovering/Resolving]

NARRATIVE: CASE EVENT DATE: 2014
